FAERS Safety Report 8181781-0 (Version None)
Quarter: 2012Q1

REPORT INFORMATION
  Report Type: 
  Country: None (occurrence: None)
  Receive Date: 20120302
  Receipt Date: 20111205
  Transmission Date: 20120608
  Serious: No
  Sender: FDA-Public Use
  Company Number: US-AMGEN-USASP2011044890

PATIENT
  Age: 49 Year
  Sex: Male
  Weight: 80 kg

DRUGS (14)
  1. OXYCODONE HCL [Concomitant]
     Dosage: UNK
     Dates: start: 20111012
  2. ARANESP [Suspect]
     Indication: ANAEMIA OF MALIGNANT DISEASE
     Dosage: UNK
     Dates: start: 20110813
  3. NPLATE [Suspect]
     Indication: IDIOPATHIC THROMBOCYTOPENIC PURPURA
     Dosage: 500 MUG, PRN
     Route: 058
     Dates: start: 20110815
  4. OXALIPLATIN [Concomitant]
     Dosage: UNK
     Dates: start: 20110823, end: 20111119
  5. ONDANSETRON [Concomitant]
     Dosage: UNK
     Dates: start: 20111019
  6. GEMZAR [Concomitant]
     Dosage: UNK
     Dates: start: 20110822, end: 20111116
  7. NYSTATIN [Concomitant]
     Dosage: UNK
     Route: 048
     Dates: start: 20111019
  8. NEULASTA [Suspect]
     Indication: CHEMOTHERAPY
     Dosage: 6 MG, UNK
     Dates: start: 20110813
  9. BACTROBAN [Concomitant]
     Route: 061
  10. MELATONIN [Concomitant]
     Dosage: UNK
     Dates: start: 20110919
  11. RESTORIL [Concomitant]
     Dosage: UNK
     Dates: start: 20111012
  12. ALDACTONE [Concomitant]
     Dosage: UNK
     Dates: start: 20111012
  13. REMERON [Concomitant]
     Dosage: UNK
     Dates: start: 20110921
  14. NEUPOGEN [Suspect]
     Indication: CHEMOTHERAPY
     Dosage: UNK
     Dates: start: 20110815

REACTIONS (4)
  - BURNING SENSATION [None]
  - OEDEMA PERIPHERAL [None]
  - NAUSEA [None]
  - ARTHRALGIA [None]
